FAERS Safety Report 19110833 (Version 1)
Quarter: 2021Q2

REPORT INFORMATION
  Report Type: Spontaneous
  Country: US (occurrence: US)
  Receive Date: 20210408
  Receipt Date: 20210408
  Transmission Date: 20210717
  Serious: No
  Sender: FDA-Public Use
  Company Number: None

PATIENT
  Age: 60 Year
  Sex: Male

DRUGS (1)
  1. MERCAPTOPURINE TAB [Suspect]
     Active Substance: MERCAPTOPURINE
     Route: 048
     Dates: start: 201908

REACTIONS (1)
  - Off label use [None]

NARRATIVE: CASE EVENT DATE: 20210408
